FAERS Safety Report 7390886-3 (Version None)
Quarter: 2011Q2

REPORT INFORMATION
  Report Type: 
  Country: None (occurrence: None)
  Receive Date: 20110404
  Receipt Date: 20110323
  Transmission Date: 20111010
  Serious: No
  Sender: FDA-Public Use
  Company Number: US-BIOGENIDEC-2011BI010944

PATIENT
  Sex: Female

DRUGS (2)
  1. AVONEX [Suspect]
     Route: 030
     Dates: start: 20030101
  2. AVONEX [Suspect]
     Indication: MULTIPLE SCLEROSIS
     Route: 030
     Dates: start: 19960101, end: 20030101

REACTIONS (5)
  - HYPOAESTHESIA [None]
  - SCAR [None]
  - INJECTION SITE HAEMATOMA [None]
  - PARAESTHESIA [None]
  - INJECTION SITE HAEMORRHAGE [None]
